FAERS Safety Report 25357375 (Version 1)
Quarter: 2025Q2

REPORT INFORMATION
  Report Type: Spontaneous
  Country: US (occurrence: US)
  Receive Date: 20250526
  Receipt Date: 20250526
  Transmission Date: 20250717
  Serious: No
  Sender: ANI
  Company Number: US-ANIPHARMA-022905

PATIENT
  Age: 91 Year
  Sex: Male

DRUGS (1)
  1. SODIUM POLYSTYRENE SULFONATE [Suspect]
     Active Substance: SODIUM POLYSTYRENE SULFONATE
     Indication: Product used for unknown indication
     Dates: start: 20250516

REACTIONS (2)
  - Product solubility abnormal [Unknown]
  - Poor quality product administered [Unknown]

NARRATIVE: CASE EVENT DATE: 20250516
